FAERS Safety Report 9958541 (Version 4)
Quarter: 2014Q2

REPORT INFORMATION
  Report Type: Spontaneous
  Country: US (occurrence: US)
  Receive Date: 20140304
  Receipt Date: 20140630
  Transmission Date: 20141212
  Serious: Yes (Hospitalization)
  Sender: FDA-Public Use
  Company Number: 2014SP001082

PATIENT
  Age: 49 Year
  Sex: Male
  Weight: 75.5 kg

DRUGS (13)
  1. DOXORUBICIN [Suspect]
     Indication: LEIOMYOSARCOMA
     Route: 040
     Dates: start: 20140124, end: 20140124
  2. DOXORUBICIN [Suspect]
     Indication: LEIOMYOSARCOMA
     Route: 040
     Dates: start: 20131011
  3. LISINOPRIL [Concomitant]
     Dates: start: 20130322
  4. HYDROCHLOROTHIAZIDE [Concomitant]
     Dates: start: 20130322
  5. DOCUSATE SODIUM [Concomitant]
  6. LORAZEPAM [Concomitant]
     Dates: start: 20131028
  7. ONDANSETRON [Concomitant]
     Dates: start: 20131011
  8. DEXAMETHASONE [Concomitant]
     Dates: start: 20130125, end: 20130127
  9. PROCHLORPERAZINE [Concomitant]
     Dates: start: 20131011
  10. MOUTH WASH [Concomitant]
     Dates: start: 20131018
  11. ASPIRIN [Concomitant]
  12. FILGRASTIM [Concomitant]
     Dates: start: 20140110
  13. PEGFILGRASTIM [Concomitant]
     Dates: start: 20140110

REACTIONS (7)
  - Febrile neutropenia [Unknown]
  - Asthenia [Unknown]
  - Chest discomfort [Unknown]
  - Dyspnoea [Recovered/Resolved]
  - Dizziness [Unknown]
  - Anxiety [Unknown]
  - Nervousness [Unknown]
